FAERS Safety Report 6935248-5 (Version None)
Quarter: 2010Q3

REPORT INFORMATION
  Report Type: 
  Country: None (occurrence: None)
  Receive Date: 20100822
  Receipt Date: 20100520
  Transmission Date: 20110219
  Serious: No
  Sender: FDA-Public Use
  Company Number: US-ALLERGAN-1006627US

PATIENT
  Sex: Female

DRUGS (4)
  1. COMBIGAN [Suspect]
     Indication: GLAUCOMA
     Dosage: UNK
     Route: 047
     Dates: start: 20100520
  2. LIPITOR [Concomitant]
  3. ASCORBIC ACID [Concomitant]
  4. MULTI-VITAMIN [Concomitant]

REACTIONS (2)
  - DRY MOUTH [None]
  - EYE PAIN [None]
